FAERS Safety Report 4514734-1 (Version None)
Quarter: 2004Q4

REPORT INFORMATION
  Report Type: 
  Country: None (occurrence: None)
  Receive Date: 20041124
  Receipt Date: 20041124
  Transmission Date: 20050328
  Serious: No
  Sender: FDA-Public Use
  Company Number: None

PATIENT
  Age: 29 Year
  Sex: Male

DRUGS (1)
  1. PREVAIL-FX ONE-STEP PREP SOLUTION [Suspect]

REACTIONS (2)
  - IATROGENIC INJURY [None]
  - THERMAL BURN [None]
